FAERS Safety Report 5436061-0 (Version None)
Quarter: 2007Q3

REPORT INFORMATION
  Report Type: 
  Country: None (occurrence: None)
  Receive Date: 20070831
  Receipt Date: 20070822
  Transmission Date: 20080115
  Serious: Yes (Hospitalization)
  Sender: FDA-Public Use
  Company Number: GB-AVENTIS-200717862GDDC

PATIENT
  Age: 74 Year
  Sex: Female
  Weight: 86 kg

DRUGS (3)
  1. LANTUS [Suspect]
     Route: 058
  2. DIAMICRON [Concomitant]
     Route: 048
  3. DIURETICS [Concomitant]
     Route: 048

REACTIONS (1)
  - HEART RATE IRREGULAR [None]
